FAERS Safety Report 13023440 (Version 1)
Quarter: 2016Q4

REPORT INFORMATION
  Report Type: Spontaneous
  Country: US (occurrence: US)
  Receive Date: 20161212
  Receipt Date: 20161212
  Transmission Date: 20170207
  Serious: Yes (Disabling)
  Sender: FDA-Public Use
  Company Number: None

PATIENT
  Age: 55 Year
  Sex: Female
  Weight: 56.7 kg

DRUGS (1)
  1. LEVOFLOXACIN  500MG [Suspect]
     Active Substance: LEVOFLOXACIN
     Indication: GALLBLADDER OPERATION
     Dosage: ?          QUANTITY:10 CAPSULE(S);?
     Route: 048

REACTIONS (14)
  - Blister [None]
  - Tendon rupture [None]
  - Hypoaesthesia [None]
  - Tooth fracture [None]
  - Tongue discolouration [None]
  - Myalgia [None]
  - Dysphagia [None]
  - Peripheral swelling [None]
  - Arthralgia [None]
  - Toothache [None]
  - Gait disturbance [None]
  - Skin exfoliation [None]
  - Onychomadesis [None]
  - Pain in extremity [None]

NARRATIVE: CASE EVENT DATE: 20151012
